FAERS Safety Report 15935364 (Version 1)
Quarter: 2019Q1

REPORT INFORMATION
  Report Type: Spontaneous
  Country: US (occurrence: US)
  Receive Date: 20190207
  Receipt Date: 20190207
  Transmission Date: 20190417
  Serious: No
  Sender: FDA-Public Use
  Company Number: US-TEVA-2019-US-997122

PATIENT

DRUGS (1)
  1. LOSARTAN TEVA [Suspect]
     Active Substance: LOSARTAN
     Dosage: 50 FEMTOGRAM DAILY;

REACTIONS (2)
  - Headache [Unknown]
  - Blood pressure abnormal [Unknown]
